FAERS Safety Report 10646666 (Version 2)
Quarter: 2015Q1

REPORT INFORMATION
  Report Type: Spontaneous
  Country: BE (occurrence: BE)
  Receive Date: 20141211
  Receipt Date: 20150107
  Transmission Date: 20150720
  Serious: Yes (Other)
  Sender: FDA-Public Use
  Company Number: BE-PFIZER INC-2014334793

PATIENT
  Age: 76 Year
  Sex: Male
  Weight: 80 kg

DRUGS (8)
  1. EMCONCOR MITIS [Concomitant]
     Dosage: 5 MG, 1X/DAY
     Route: 048
  2. ASAFLOW [Concomitant]
     Active Substance: ASPIRIN
     Dosage: 80 MG, 1X/DAY
     Route: 048
  3. VASEXTEN [Concomitant]
     Active Substance: BARNIDIPINE
     Dosage: UNK
     Route: 048
  4. EMCONCOR MINOR [Concomitant]
     Dosage: 2.5 MG, 1X/DAY
     Route: 048
  5. TEVETEN [Concomitant]
     Active Substance: EPROSARTAN MESYLATE
     Dosage: 600 MG, 1X/DAY
     Route: 048
  6. LIPITOR [Suspect]
     Active Substance: ATORVASTATIN CALCIUM
     Indication: HYPERCHOLESTEROLAEMIA
     Dosage: 10 MG, UNK
     Route: 048
     Dates: start: 2012, end: 2013
  7. NEXIUM [Concomitant]
     Active Substance: ESOMEPRAZOLE MAGNESIUM
     Dosage: 20 MG, 1X/DAY
     Route: 048
  8. FORZATEN [Concomitant]
     Dosage: 1 DF, 1X/DAY
     Route: 048

REACTIONS (2)
  - Angina pectoris [Recovered/Resolved]
  - Dyspnoea [Recovered/Resolved]
